FAERS Safety Report 9146784 (Version 1)
Quarter: 2013Q1

REPORT INFORMATION
  Report Type: Spontaneous
  Country: IT (occurrence: IT)
  Receive Date: 20130307
  Receipt Date: 20130307
  Transmission Date: 20140127
  Serious: Yes (Hospitalization)
  Sender: FDA-Public Use
  Company Number: IT-JNJFOC-20130301974

PATIENT
  Age: 74 Year
  Sex: Male

DRUGS (10)
  1. SIMPONI [Suspect]
     Indication: PRODUCT USED FOR UNKNOWN INDICATION
     Route: 058
     Dates: start: 20130115, end: 20130115
  2. METHOTREXATE SODIUM [Concomitant]
     Route: 065
  3. PANTOPRAZOLE SODIUM [Concomitant]
     Route: 065
  4. ATORVASTATIN [Concomitant]
     Route: 065
  5. SEREUPIN [Concomitant]
     Route: 048
  6. LEDERFOLINE [Concomitant]
     Route: 065
  7. ZOFENOPRIL [Concomitant]
     Route: 048
  8. FINASTERIDE [Concomitant]
     Route: 065
  9. LYRICA [Concomitant]
     Route: 048
  10. CARDIOASPIRIN [Concomitant]
     Route: 048

REACTIONS (1)
  - Pseudomonal sepsis [Recovering/Resolving]
